FAERS Safety Report 14544995 (Version 1)
Quarter: 2018Q1

REPORT INFORMATION
  Report Type: Spontaneous
  Country: US (occurrence: US)
  Receive Date: 20180216
  Receipt Date: 20180216
  Transmission Date: 20180509
  Serious: Yes (Hospitalization)
  Sender: FDA-Public Use
  Company Number: None

PATIENT
  Age: 54 Year
  Sex: Male

DRUGS (1)
  1. PROMACTA [Suspect]
     Active Substance: ELTROMBOPAG OLAMINE
     Indication: IMMUNE THROMBOCYTOPENIC PURPURA
     Dates: start: 20180116, end: 20180126

REACTIONS (6)
  - Myocardial infarction [None]
  - Cardiomyopathy [None]
  - Chest pain [None]
  - Therapy cessation [None]
  - Ejection fraction decreased [None]
  - Platelet count increased [None]

NARRATIVE: CASE EVENT DATE: 20180128
